FAERS Safety Report 6856886-4 (Version None)
Quarter: 2010Q3

REPORT INFORMATION
  Report Type: 
  Country: None (occurrence: None)
  Receive Date: 20100719
  Receipt Date: 20100504
  Transmission Date: 20110219
  Serious: No
  Sender: FDA-Public Use
  Company Number: US-BRISTOL-MYERS SQUIBB COMPANY-15090798

PATIENT
  Sex: Female

DRUGS (1)
  1. ESTRACE [Suspect]

REACTIONS (1)
  - BREAST TENDERNESS [None]
